FAERS Safety Report 9330831 (Version 1)
Quarter: 2013Q2

REPORT INFORMATION
  Report Type: Report from Study
  Country: BR (occurrence: BR)
  Receive Date: 20130605
  Receipt Date: 20130605
  Transmission Date: 20140414
  Serious: Yes (Death, Hospitalization, Other)
  Sender: FDA-Public Use
  Company Number: PHHY2013BR056538

PATIENT
  Sex: Female
  Weight: 45 kg

DRUGS (7)
  1. ACLASTA [Suspect]
     Indication: OSTEOPOROSIS
     Dosage: 5 MG, YEARLY
     Route: 042
  2. HIDANTAL [Concomitant]
     Indication: CONVULSION
     Dosage: 2 DF, UNK
     Route: 048
  3. ARADOIS [Concomitant]
     Indication: HYPERTENSION
     Dosage: 2 DF, UNK
     Route: 048
  4. ATENOLOL [Concomitant]
     Indication: HYPERTENSION
     Dosage: 2 DF, UNK
     Route: 048
  5. PREDNISONE [Concomitant]
     Indication: OSTEOARTHRITIS
     Dosage: 1 DF, IN MORNING
     Route: 048
  6. METHOTREXATE [Concomitant]
     Indication: OSTEOARTHRITIS
     Dosage: 1 DF, 2 TIMES A WEEK
     Route: 048
  7. OS-CAL D [Concomitant]
     Indication: OSTEOPOROSIS
     Dosage: 1 DF, EVERY 12 HOURS
     Route: 048

REACTIONS (8)
  - Respiratory arrest [Fatal]
  - Infection [Fatal]
  - Convulsion [Not Recovered/Not Resolved]
  - Decreased immune responsiveness [Not Recovered/Not Resolved]
  - Asthenia [Not Recovered/Not Resolved]
  - Candida infection [Not Recovered/Not Resolved]
  - Dysphagia [Not Recovered/Not Resolved]
  - Wound [Not Recovered/Not Resolved]
